FAERS Safety Report 9854886 (Version 1)
Quarter: 2013Q4

REPORT INFORMATION
  Report Type: Spontaneous
  Country: US (occurrence: None)
  Receive Date: 20131226
  Receipt Date: 20131226
  Transmission Date: 20140711
  Serious: No
  Sender: FDA-Public Use
  Company Number: PHEH2013US013945

PATIENT
  Age: 81 Year
  Sex: Female
  Weight: 62.6 kg

DRUGS (1)
  1. AFINITOR (RAD) UNKNOWN [Suspect]
     Indication: BREAST CANCER
     Route: 048

REACTIONS (2)
  - Cough [None]
  - Dyspnoea [None]
